FAERS Safety Report 22641741 (Version 2)
Quarter: 2023Q2

REPORT INFORMATION
  Report Type: Spontaneous
  Country: CH (occurrence: CH)
  Receive Date: 20230626
  Receipt Date: 20230629
  Transmission Date: 20230721
  Serious: Yes (Death, Hospitalization)
  Sender: FDA-Public Use
  Company Number: None

PATIENT
  Age: 87 Year
  Sex: Male

DRUGS (8)
  1. ALDACTONE [Suspect]
     Active Substance: SPIRONOLACTONE
     Dosage: 25 MG, 1X/DAY (1-0-0-0)
     Route: 048
     Dates: start: 2018, end: 20230530
  2. CORDARONE [Suspect]
     Active Substance: AMIODARONE HYDROCHLORIDE
     Indication: Ventricular extrasystoles
     Dosage: 200 MG, 1X/DAY (1-0-0-0)
     Route: 048
     Dates: start: 2021
  3. CORDARONE [Suspect]
     Active Substance: AMIODARONE HYDROCHLORIDE
     Dosage: 600 MG, 1X/DAY (1-0-0-0)
     Route: 048
     Dates: start: 20230602
  4. XARELTO [Suspect]
     Active Substance: RIVAROXABAN
     Indication: Atrial fibrillation
     Dosage: 20 MG, 1X/DAY (1-0-0-0)
     Route: 048
     Dates: start: 2018, end: 20230530
  5. ROSUVASTATIN CALCIUM [Suspect]
     Active Substance: ROSUVASTATIN CALCIUM
     Dosage: 10 MG, 1X/DAY (1-0-0-0)
     Route: 048
     Dates: start: 2018, end: 20230530
  6. HALOPERIDOL [Suspect]
     Active Substance: HALOPERIDOL
     Dosage: UNCLEAR WHEN TREATMENT STARTED EXACTLY , BUT STARTED BEFORE ONSET OF SYMPTOMS. ADMINISTERED ON 1....
     Dates: start: 20230601, end: 20230602
  7. ALENDRONATE [Concomitant]
     Active Substance: ALENDRONATE SODIUM
     Dosage: 70 MG, WEEKLY
     Dates: start: 2018, end: 20230530
  8. CALCIUM\CHOLECALCIFEROL [Concomitant]
     Active Substance: CALCIUM\CHOLECALCIFEROL
     Dosage: UNK
     Dates: end: 20230530

REACTIONS (7)
  - Hepatic failure [Fatal]
  - Hypernatraemia [Fatal]
  - Hepatic encephalopathy [Fatal]
  - Hyperbilirubinaemia [Unknown]
  - Coagulopathy [Unknown]
  - Cardiac failure [Unknown]
  - Disease recurrence [Unknown]

NARRATIVE: CASE EVENT DATE: 20230530
